FAERS Safety Report 6582308-7 (Version None)
Quarter: 2010Q1

REPORT INFORMATION
  Report Type: 
  Country: None (occurrence: None)
  Receive Date: 20100212
  Receipt Date: 20100212
  Transmission Date: 20100710
  Serious: Yes (Hospitalization)
  Sender: FDA-Public Use
  Company Number: None

PATIENT
  Sex: Female
  Weight: 115.82 kg

DRUGS (2)
  1. CARBOPLATIN [Suspect]
     Dosage: 783 MG
  2. TAXOTERE [Suspect]
     Dosage: 150 MG

REACTIONS (7)
  - ARTHRALGIA [None]
  - CHILLS [None]
  - DYSURIA [None]
  - HAEMOGLOBIN DECREASED [None]
  - HEADACHE [None]
  - NAUSEA [None]
  - VOMITING [None]
